FAERS Safety Report 10183439 (Version 1)
Quarter: 2014Q2

REPORT INFORMATION
  Report Type: Spontaneous
  Country: US (occurrence: US)
  Receive Date: 20140520
  Receipt Date: 20140520
  Transmission Date: 20141212
  Serious: No
  Sender: FDA-Public Use
  Company Number: US-ASTRAZENECA-2013SE47019

PATIENT
  Age: 58 Year
  Sex: Male
  Weight: 81.6 kg

DRUGS (2)
  1. ATACAND [Suspect]
     Indication: HYPERTENSION
     Route: 048
     Dates: start: 201305
  2. METOPROLOL SUCCINATE [Suspect]
     Indication: HYPERTENSION
     Route: 048
     Dates: start: 1991, end: 201305

REACTIONS (2)
  - Libido decreased [Recovered/Resolved]
  - Drug ineffective [Recovered/Resolved]
